FAERS Safety Report 6358126-1 (Version None)
Quarter: 2009Q3

REPORT INFORMATION
  Report Type: 
  Country: None (occurrence: None)
  Receive Date: 20090916
  Receipt Date: 20090914
  Transmission Date: 20100115
  Serious: Yes (Death)
  Sender: FDA-Public Use
  Company Number: US-JNJFOC-20080806202

PATIENT
  Sex: Male
  Weight: 116.12 kg

DRUGS (9)
  1. FENTANYL TRANSDERMAL SYSTEM [Suspect]
     Indication: PAIN
     Route: 062
  2. ULTRAM [Concomitant]
     Route: 048
  3. ULTRAM [Concomitant]
     Indication: PAIN
     Route: 048
  4. SYNTHROID [Concomitant]
  5. LEXAPRO [Concomitant]
  6. SOMA [Concomitant]
     Indication: PAIN
     Route: 048
  7. UNSPECIFIED BLOOD PRESSURE MEDS [Concomitant]
  8. ^CHOLESTEROL MEDICATION^ [Concomitant]
  9. ROBITUSSIN A-C [Concomitant]
     Indication: COUGH
     Dosage: AS NECESSARY

REACTIONS (4)
  - DRUG INEFFECTIVE [None]
  - INAPPROPRIATE SCHEDULE OF DRUG ADMINISTRATION [None]
  - NARCOTIC INTOXICATION [None]
  - SEDATION [None]
